FAERS Safety Report 21967159 (Version 2)
Quarter: 2023Q1

REPORT INFORMATION
  Report Type: Spontaneous
  Country: JP (occurrence: JP)
  Receive Date: 20230208
  Receipt Date: 20230307
  Transmission Date: 20230417
  Serious: Yes (Death, Hospitalization)
  Sender: FDA-Public Use
  Company Number: JP-MYLANLABS-2023M1013130

PATIENT
  Age: 35 Year
  Sex: Male

DRUGS (17)
  1. PREDNISOLONE [Suspect]
     Active Substance: PREDNISOLONE
     Indication: Anaplastic large-cell lymphoma
     Dosage: 100 MILLIGRAM, QD, ON DAY 1-5
     Route: 065
  2. CARBOPLATIN [Suspect]
     Active Substance: CARBOPLATIN
     Indication: Anaplastic large-cell lymphoma
     Dosage: 300 MILLIGRAM/SQ. METER, ON DAY 1
     Route: 065
  3. CARBOPLATIN [Suspect]
     Active Substance: CARBOPLATIN
     Dosage: AUC=1.25; ON DAYS 1-4
     Route: 065
  4. METHYLPREDNISOLONE [Suspect]
     Active Substance: METHYLPREDNISOLONE
     Indication: Anaplastic large-cell lymphoma
     Dosage: 500 MILLIGRAM, QD, FOR 3 DAYS
     Route: 065
  5. METHYLPREDNISOLONE [Suspect]
     Active Substance: METHYLPREDNISOLONE
     Dosage: 500 MILLIGRAM, QD, ON DAYS 1-5
     Route: 065
  6. URSODIOL [Suspect]
     Active Substance: URSODIOL
     Indication: Jaundice
     Dosage: UNK
     Route: 065
  7. CYCLOPHOSPHAMIDE [Suspect]
     Active Substance: CYCLOPHOSPHAMIDE
     Indication: Anaplastic large-cell lymphoma
     Dosage: 375 MILLIGRAM/SQ. METER, FOR 1 DAY
     Route: 065
  8. CYCLOPHOSPHAMIDE [Suspect]
     Active Substance: CYCLOPHOSPHAMIDE
     Dosage: 560 MILLIGRAM/SQ. METER, ON DAY 1
     Route: 065
  9. CISPLATIN [Suspect]
     Active Substance: CISPLATIN
     Indication: Anaplastic large-cell lymphoma
     Dosage: 25 MILLIGRAM/SQ. METER, FOR 3 DAYS
     Route: 065
  10. DOXORUBICIN [Suspect]
     Active Substance: DOXORUBICIN
     Indication: Anaplastic large-cell lymphoma
     Dosage: 12.5 MILLIGRAM/SQ. METER, ON DAY 1
     Route: 065
  11. IFOSFAMIDE [Suspect]
     Active Substance: IFOSFAMIDE
     Indication: Anaplastic large-cell lymphoma
     Dosage: 1500 MILLIGRAM/SQ. METER, ON DAY 1-3
     Route: 065
  12. DEXAMETHASONE [Suspect]
     Active Substance: DEXAMETHASONE
     Indication: Anaplastic large-cell lymphoma
     Dosage: 39.6 MILLIGRAM, QD, ON DAY 1-3
     Route: 065
  13. ETOPOSIDE [Suspect]
     Active Substance: ETOPOSIDE
     Indication: Anaplastic large-cell lymphoma
     Dosage: 40 MILLIGRAM/SQ. METER, ON DAYS 1-4
     Route: 065
  14. CYTARABINE [Suspect]
     Active Substance: CYTARABINE
     Indication: Anaplastic large-cell lymphoma
     Dosage: 2000 MILLIGRAM/SQ. METER, ON DAYS 5
     Route: 065
  15. GEMCITABINE [Suspect]
     Active Substance: GEMCITABINE
     Indication: Hodgkin^s disease nodular sclerosis
     Dosage: UNK
     Route: 065
  16. BRENTUXIMAB VEDOTIN [Concomitant]
     Active Substance: BRENTUXIMAB VEDOTIN
     Indication: Hodgkin^s disease nodular sclerosis
     Dosage: 1.8 MILLIGRAM/KILOGRAM, Q3W, CYCLIC THERAPY
     Route: 065
  17. BRENTUXIMAB VEDOTIN [Concomitant]
     Active Substance: BRENTUXIMAB VEDOTIN
     Dosage: 1.2 MILLIGRAM/KILOGRAM, Q3W,  CYCLIC THERAPY
     Route: 065

REACTIONS (1)
  - Drug ineffective [Fatal]
